FAERS Safety Report 7985142-6 (Version None)
Quarter: 2011Q4

REPORT INFORMATION
  Report Type: 
  Country: None (occurrence: None)
  Receive Date: 20111216
  Receipt Date: 20111208
  Transmission Date: 20120403
  Serious: Yes (Other)
  Sender: FDA-Public Use
  Company Number: IL-NOVOPROD-341182

PATIENT

DRUGS (4)
  1. CILARIL [Concomitant]
     Dosage: 5 MG, QD
  2. VICTOZA [Suspect]
     Indication: TYPE 2 DIABETES MELLITUS
     Dosage: 1.8 MG, QD
     Route: 065
     Dates: start: 20100801, end: 20111001
  3. GLUCOPHAGE [Concomitant]
     Dosage: 2250 MG, QD
  4. DISOTHIAZIDE [Concomitant]
     Dosage: 25 MG, QD

REACTIONS (5)
  - HEADACHE [None]
  - ASTHENIA [None]
  - WEIGHT DECREASED [None]
  - LIVER DISORDER [None]
  - CARBOHYDRATE ANTIGEN 19-9 INCREASED [None]
